FAERS Safety Report 25106039 (Version 1)
Quarter: 2025Q1

REPORT INFORMATION
  Report Type: Spontaneous
  Country: GB (occurrence: GB)
  Receive Date: 20250321
  Receipt Date: 20250321
  Transmission Date: 20250409
  Serious: Yes (Hospitalization, Other)
  Sender: TEVA
  Company Number: None

PATIENT
  Age: 65 Year
  Sex: Male
  Weight: 86 kg

DRUGS (1)
  1. AMLODIPINE [Suspect]
     Active Substance: AMLODIPINE BESYLATE
     Indication: Blood pressure increased
     Dosage: 5MG ONCE A DAY. MORNING
     Route: 065
     Dates: start: 20250205, end: 20250307

REACTIONS (10)
  - Headache [Recovering/Resolving]
  - Urticaria [Unknown]
  - Nausea [Unknown]
  - Paraesthesia [Unknown]
  - Confusional state [Unknown]
  - Hallucination [Unknown]
  - Hypoaesthesia [Unknown]
  - Personality change [Unknown]
  - Syncope [Unknown]
  - Muscle spasms [Unknown]

NARRATIVE: CASE EVENT DATE: 20250307
